FAERS Safety Report 8171252-X (Version None)
Quarter: 2012Q1

REPORT INFORMATION
  Report Type: 
  Country: None (occurrence: None)
  Receive Date: 20120228
  Receipt Date: 20120222
  Transmission Date: 20120608
  Serious: Yes (Other)
  Sender: FDA-Public Use
  Company Number: CA-PFIZER INC-2012016922

PATIENT
  Age: 17 Year
  Sex: Male
  Weight: 72.562 kg

DRUGS (2)
  1. IBUPROFEN (ADVIL) [Suspect]
     Indication: HEADACHE
     Dosage: 1-2 PILLS OF 400 MG, SINGLE AT NIGHT
     Route: 048
     Dates: start: 20111220, end: 20111220
  2. METHAMPHETAMINE HYDROCHLORIDE [Suspect]
     Dosage: SPLIT ONE HIT
     Route: 048
     Dates: start: 20120101

REACTIONS (2)
  - GASTROOESOPHAGEAL REFLUX DISEASE [None]
  - OESOPHAGEAL ULCER [None]
